FAERS Safety Report 6104767-6 (Version None)
Quarter: 2009Q1

REPORT INFORMATION
  Report Type: 
  Country: None (occurrence: None)
  Receive Date: 20090304
  Receipt Date: 20090304
  Transmission Date: 20090719
  Serious: Yes (Hospitalization)
  Sender: FDA-Public Use
  Company Number: None

PATIENT
  Age: 73 Year
  Sex: Female
  Weight: 92.9874 kg

DRUGS (1)
  1. LEVAQUIN [Suspect]
     Indication: URINARY TRACT INFECTION
     Dosage: 1 DAILY 1ST PILL TAKEN
     Dates: start: 20090212

REACTIONS (5)
  - COLD SWEAT [None]
  - DIZZINESS [None]
  - DYSPNOEA [None]
  - HOT FLUSH [None]
  - TREMOR [None]
